FAERS Safety Report 9895795 (Version 2)
Quarter: 2014Q1

REPORT INFORMATION
  Report Type: Spontaneous
  Country: US (occurrence: US)
  Receive Date: 20140213
  Receipt Date: 20140213
  Transmission Date: 20141002
  Serious: No
  Sender: FDA-Public Use
  Company Number: US-BRISTOL-MYERS SQUIBB COMPANY-19500305

PATIENT
  Age: 55 Year
  Sex: Female
  Weight: 74.83 kg

DRUGS (15)
  1. ABATACEPT SUBQ INJECTION 125MG/ML [Suspect]
     Indication: RHEUMATOID ARTHRITIS
     Route: 058
     Dates: start: 20130910
  2. LEVOTHYROXIN [Concomitant]
     Dosage: TAB
  3. SINGULAIR [Concomitant]
     Dosage: TAB
  4. RANITIDINE [Concomitant]
     Dosage: CAP
  5. ESTRADIOL [Concomitant]
     Dosage: TAB
  6. CELEBREX [Concomitant]
     Dosage: CAP
  7. LEFLUNOMIDE [Concomitant]
     Dosage: TAB
  8. FISH OIL [Concomitant]
     Dosage: CAP
  9. ASPIRIN [Concomitant]
     Dosage: ASPIRIN CUW 81MG
  10. MULTIVITAMIN [Concomitant]
     Dosage: CAP
  11. HYDROXYCHLOROQUINE [Concomitant]
  12. GLUCOSAMINE [Concomitant]
  13. BIOTIN [Concomitant]
  14. CLARITIN [Concomitant]
  15. LIDOCAINE [Concomitant]
     Dosage: LIDOCAINE PATCH 5%

REACTIONS (1)
  - Sinus disorder [Unknown]
